FAERS Safety Report 9970859 (Version 1)
Quarter: 2014Q1

REPORT INFORMATION
  Report Type: Report from Study
  Country: US (occurrence: US)
  Receive Date: 20140306
  Receipt Date: 20140306
  Transmission Date: 20141002
  Serious: No
  Sender: FDA-Public Use
  Company Number: US-ABBVIE-13P-163-1152456-00

PATIENT
  Sex: Male

DRUGS (1)
  1. HUMIRA [Suspect]
     Indication: RHEUMATOID ARTHRITIS
     Route: 058
     Dates: start: 20130811

REACTIONS (6)
  - Fatigue [Unknown]
  - Gynaecomastia [Unknown]
  - Pain [Unknown]
  - Rash [Unknown]
  - No therapeutic response [Unknown]
  - Weight increased [Unknown]
